FAERS Safety Report 17871575 (Version 1)
Quarter: 2020Q2

REPORT INFORMATION
  Report Type: Spontaneous
  Country: CA (occurrence: CA)
  Receive Date: 20200608
  Receipt Date: 20200608
  Transmission Date: 20200714
  Serious: Yes (Life-Threatening, Hospitalization, Other)
  Sender: FDA-Public Use
  Company Number: CA-SAMSUNG BIOEPIS-SB-2018-03347

PATIENT
  Age: 44 Year
  Sex: Male

DRUGS (25)
  1. ANAKINRA [Suspect]
     Active Substance: ANAKINRA
     Indication: IMMUNOSUPPRESSION
     Route: 065
  2. ANAKINRA [Suspect]
     Active Substance: ANAKINRA
     Indication: TRANSPLANT
  3. ALEMTUZUMAB [Suspect]
     Active Substance: ALEMTUZUMAB
     Indication: IMMUNOSUPPRESSANT DRUG THERAPY
  4. TACROLIMUS. [Suspect]
     Active Substance: TACROLIMUS
     Indication: IMMUNOSUPPRESSION
     Dosage: UNKNOWN
     Route: 065
  5. SIROLIMUS. [Suspect]
     Active Substance: SIROLIMUS
     Indication: TRANSPLANT
     Dosage: UNKNOWN
     Route: 065
  6. SIROLIMUS. [Suspect]
     Active Substance: SIROLIMUS
     Indication: IMMUNOSUPPRESSION
  7. ETANERCEPT [Suspect]
     Active Substance: ETANERCEPT
     Indication: TRANSPLANT
     Dosage: UNKNOWN
     Route: 065
  8. APO-MYCOPHENOLATE [Suspect]
     Active Substance: MYCOPHENOLIC ACID
     Indication: IMMUNOSUPPRESSION
     Route: 041
  9. ENBREL [Suspect]
     Active Substance: ETANERCEPT
     Indication: TRANSPLANT
     Route: 065
  10. ALEMTUZUMAB [Suspect]
     Active Substance: ALEMTUZUMAB
     Indication: TRANSPLANT
     Dosage: UNKNOWN, SOLUTION FOR INJECTION/INFUSION
     Route: 065
  11. ALEMTUZUMAB [Suspect]
     Active Substance: ALEMTUZUMAB
     Indication: PANCREAS TRANSPLANT
     Dosage: SOLUTION INTRAVENOUS
     Route: 041
  12. ANAKINRA [Suspect]
     Active Substance: ANAKINRA
     Indication: IMMUNOSUPPRESSANT DRUG THERAPY
  13. MYCOPHENOLATE MOFETIL. [Suspect]
     Active Substance: MYCOPHENOLATE MOFETIL
     Indication: IMMUNOSUPPRESSION
     Route: 041
  14. APO-MYCOPHENOLATE [Suspect]
     Active Substance: MYCOPHENOLIC ACID
     Indication: PANCREAS TRANSPLANT
  15. RAPAMUNE [Suspect]
     Active Substance: SIROLIMUS
     Indication: TRANSPLANT
     Dosage: UNKNOWN
     Route: 065
  16. ETANERCEPT [Suspect]
     Active Substance: ETANERCEPT
     Indication: IMMUNOSUPPRESSION
     Route: 065
  17. ALEMTUZUMAB [Suspect]
     Active Substance: ALEMTUZUMAB
     Indication: IMMUNOSUPPRESSION
     Dosage: SOLUTION
     Route: 041
  18. TACROLIMUS. [Suspect]
     Active Substance: TACROLIMUS
     Indication: IMMUNOSUPPRESSANT DRUG THERAPY
  19. APO-MYCOPHENOLATE [Suspect]
     Active Substance: MYCOPHENOLIC ACID
     Indication: IMMUNOSUPPRESSANT DRUG THERAPY
  20. ANAKINRA [Suspect]
     Active Substance: ANAKINRA
     Indication: PANCREAS TRANSPLANT
  21. TACROLIMUS. [Suspect]
     Active Substance: TACROLIMUS
     Indication: TRANSPLANT
  22. TACROLIMUS. [Suspect]
     Active Substance: TACROLIMUS
     Indication: PANCREAS TRANSPLANT
  23. APO-MYCOPHENOLATE [Suspect]
     Active Substance: MYCOPHENOLIC ACID
     Indication: TRANSPLANT
  24. ENBREL [Suspect]
     Active Substance: ETANERCEPT
     Indication: IMMUNOSUPPRESSION
  25. RAPAMUNE [Suspect]
     Active Substance: SIROLIMUS
     Indication: IMMUNOSUPPRESSION

REACTIONS (23)
  - Diplopia [Recovered/Resolved]
  - Weight decreased [Recovered/Resolved]
  - Acute kidney injury [Recovered/Resolved]
  - Product use in unapproved indication [Recovered/Resolved]
  - Abdominal pain [Recovered/Resolved]
  - Headache [Recovered/Resolved]
  - Diffuse large B-cell lymphoma [Recovered/Resolved]
  - Colectomy [Recovered/Resolved]
  - Vertigo [Recovered/Resolved]
  - Stem cell transplant [Recovered/Resolved]
  - Gait disturbance [Recovered/Resolved]
  - Febrile neutropenia [Recovered/Resolved]
  - Transplant failure [Recovered/Resolved]
  - Off label use [Recovered/Resolved]
  - Post transplant lymphoproliferative disorder [Recovered/Resolved]
  - Diarrhoea haemorrhagic [Recovered/Resolved]
  - Central nervous system lymphoma [Recovered/Resolved]
  - Normocytic anaemia [Recovered/Resolved]
  - Sepsis [Recovered/Resolved]
  - Enteritis [Recovered/Resolved]
  - Meningitis viral [Recovered/Resolved]
  - Nystagmus [Recovered/Resolved]
  - Propionibacterium infection [Recovered/Resolved]
